FAERS Safety Report 12170915 (Version 1)
Quarter: 2016Q1

REPORT INFORMATION
  Report Type: Not Available
  Country: TR (occurrence: TR)
  Receive Date: 20160311
  Receipt Date: 20160311
  Transmission Date: 20160526
  Serious: Yes (Life-Threatening, Hospitalization, Other)
  Sender: FDA-Public Use
  Company Number: US-AKORN-26429

PATIENT
  Age: 9 Year
  Sex: Female

DRUGS (1)
  1. LEVETIRACETAM ORAL SOLUTION [Suspect]
     Active Substance: LEVETIRACETAM

REACTIONS (4)
  - Drug reaction with eosinophilia and systemic symptoms [None]
  - Lymphocyte morphology abnormal [None]
  - Pyrexia [None]
  - Eosinophilia [None]
